FAERS Safety Report 7453826-4 (Version None)
Quarter: 2011Q2

REPORT INFORMATION
  Report Type: 
  Country: None (occurrence: None)
  Receive Date: 20110502
  Receipt Date: 20110204
  Transmission Date: 20111010
  Serious: No
  Sender: FDA-Public Use
  Company Number: US-ASTRAZENECA-2011SE04724

PATIENT
  Age: 35 Year
  Sex: Female

DRUGS (3)
  1. PRILOSEC OTC [Suspect]
     Route: 048
  2. PRILOSEC [Suspect]
     Route: 048
  3. NEXIUM [Suspect]
     Route: 048

REACTIONS (5)
  - DYSPNOEA [None]
  - CHEST PAIN [None]
  - FEELING ABNORMAL [None]
  - DRUG DOSE OMISSION [None]
  - DRUG INEFFECTIVE [None]
